FAERS Safety Report 11632946 (Version 1)
Quarter: 2015Q4

REPORT INFORMATION
  Report Type: Spontaneous
  Country: US (occurrence: None)
  Receive Date: 20151014
  Receipt Date: 20151014
  Transmission Date: 20160304
  Serious: Yes (Other)
  Sender: FDA-Public Use
  Company Number: None

PATIENT
  Age: 44 Year
  Sex: Female

DRUGS (1)
  1. HUMIRA [Suspect]
     Active Substance: ADALIMUMAB
     Indication: RHEUMATOID ARTHRITIS
     Dosage: SUBCUTANEOUS ?40MG?INJECTABLE?QOW?ONLY ONE INJECTION
     Route: 058
     Dates: start: 20150925

REACTIONS (2)
  - Therapy cessation [None]
  - Sinusitis [None]

NARRATIVE: CASE EVENT DATE: 20150930
